FAERS Safety Report 12214469 (Version 5)
Quarter: 2016Q2

REPORT INFORMATION
  Report Type: Spontaneous
  Country: DE (occurrence: DE)
  Receive Date: 20160328
  Receipt Date: 20160504
  Transmission Date: 20160815
  Serious: Yes (Death, Hospitalization, Other)
  Sender: FDA-Public Use
  Company Number: US-ASTRAZENECA-2016SE32970

PATIENT
  Age: 2 Year
  Sex: Male
  Weight: 8.2 kg

DRUGS (3)
  1. SYNAGIS [Suspect]
     Active Substance: PALIVIZUMAB
     Indication: PREMATURE BABY
     Dosage: 15MG/KG BODY WEIGHT, 100MG PLUS 50 MG
     Route: 030
     Dates: start: 20141020, end: 20160318
  2. SYNAGIS [Suspect]
     Active Substance: PALIVIZUMAB
     Indication: HEART DISEASE CONGENITAL
     Dosage: 15MG/KG BODY WEIGHT, 100MG PLUS 50 MG
     Route: 030
     Dates: start: 20141020, end: 20160318
  3. SYNAGIS [Suspect]
     Active Substance: PALIVIZUMAB
     Indication: ANTIVIRAL PROPHYLAXIS
     Dosage: 15MG/KG BODY WEIGHT, 100MG PLUS 50 MG
     Route: 030
     Dates: start: 20141020, end: 20160318

REACTIONS (4)
  - Multimorbidity [Fatal]
  - Respiratory syncytial virus infection [Fatal]
  - Multiple organ dysfunction syndrome [Fatal]
  - Renal function test abnormal [Fatal]

NARRATIVE: CASE EVENT DATE: 2016
